FAERS Safety Report 5652253-X (Version None)
Quarter: 2008Q1

REPORT INFORMATION
  Report Type: 
  Country: None (occurrence: None)
  Receive Date: 20080305
  Receipt Date: 20080303
  Transmission Date: 20080703
  Serious: Yes (Hospitalization, Other)
  Sender: FDA-Public Use
  Company Number: US-BOEHRINGER INGELHEIM GMBH, GERMANY-2008-BP-03188BP

PATIENT
  Sex: Female

DRUGS (9)
  1. SPIRIVA [Suspect]
     Indication: CHRONIC OBSTRUCTIVE PULMONARY DISEASE
     Route: 055
     Dates: start: 20060101
  2. LEXAPRO [Concomitant]
  3. DIGOXIN [Concomitant]
  4. SINGULAIR [Concomitant]
  5. ACTONEL [Concomitant]
  6. ATENOLOL [Concomitant]
  7. PREMARIN [Concomitant]
  8. LIPITOR [Concomitant]
  9. ATIVAN [Concomitant]

REACTIONS (7)
  - ALOPECIA [None]
  - DRY MOUTH [None]
  - FALL [None]
  - POLLAKIURIA [None]
  - URINARY INCONTINENCE [None]
  - VERTIGO [None]
  - VISION BLURRED [None]
